FAERS Safety Report 5580990-4 (Version None)
Quarter: 2007Q4

REPORT INFORMATION
  Report Type: 
  Country: None (occurrence: None)
  Receive Date: 20071227
  Receipt Date: 20071218
  Transmission Date: 20080405
  Serious: Yes (Hospitalization)
  Sender: FDA-Public Use
  Company Number: S07-USA-06385-01

PATIENT
  Age: 74 Year
  Sex: Female

DRUGS (5)
  1. LEXAPRO [Suspect]
     Indication: DEPRESSION
     Dosage: 10 MG QD PO
     Route: 048
     Dates: start: 20071116
  2. AGGRENOX [Suspect]
     Indication: BLOOD DISORDER
     Dates: start: 20071120, end: 20071120
  3. LEVOXYL [Concomitant]
  4. ASPIRIN [Concomitant]
  5. LESCOL [Concomitant]

REACTIONS (4)
  - APHASIA [None]
  - BLOOD PRESSURE DECREASED [None]
  - CLAUSTROPHOBIA [None]
  - HEADACHE [None]
